FAERS Safety Report 4743732-8 (Version None)
Quarter: 2005Q3

REPORT INFORMATION
  Report Type: 
  Country: None (occurrence: None)
  Receive Date: 20050812
  Receipt Date: 20050805
  Transmission Date: 20060218
  Serious: Yes (Other)
  Sender: FDA-Public Use
  Company Number: US-GLAXOSMITHKLINE-A0569803A

PATIENT
  Sex: Male

DRUGS (1)
  1. PAXIL [Suspect]
     Route: 065

REACTIONS (4)
  - AGGRESSION [None]
  - PHYSICAL ASSAULT [None]
  - SELF MUTILATION [None]
  - SUICIDE ATTEMPT [None]
